FAERS Safety Report 19362512 (Version 1)
Quarter: 2021Q2

REPORT INFORMATION
  Report Type: Spontaneous
  Country: GB (occurrence: GB)
  Receive Date: 20210602
  Receipt Date: 20210602
  Transmission Date: 20210717
  Serious: Yes (Other)
  Sender: FDA-Public Use
  Company Number: GB-MYLANLABS-2021M1031604

PATIENT
  Age: 36 Year
  Sex: Male
  Weight: 100 kg

DRUGS (6)
  1. PREDNISOLONE. [Concomitant]
     Active Substance: PREDNISOLONE
     Indication: ILL-DEFINED DISORDER
     Dosage: UNK
  2. ALLOPURINOL. [Concomitant]
     Active Substance: ALLOPURINOL
     Indication: ILL-DEFINED DISORDER
     Dosage: UNK
  3. WARFARIN [Suspect]
     Active Substance: WARFARIN
     Indication: CEREBRAL VENOUS SINUS THROMBOSIS
     Dosage: 6 MILLIGRAM, QD,VARIES, CURRENTLY 6MG DAILY
     Route: 048
     Dates: start: 20210106
  4. COLCHICINE. [Concomitant]
     Active Substance: COLCHICINE
     Indication: ILL-DEFINED DISORDER
     Dosage: UNK
  5. STEXEROL D3 [Concomitant]
     Indication: ILL-DEFINED DISORDER
     Dosage: UNK
  6. VITAMIN C [Concomitant]
     Active Substance: ASCORBIC ACID
     Indication: ILL-DEFINED DISORDER
     Dosage: UNK

REACTIONS (1)
  - Arthralgia [Not Recovered/Not Resolved]

NARRATIVE: CASE EVENT DATE: 20210214
